FAERS Safety Report 7747282-6 (Version None)
Quarter: 2011Q3

REPORT INFORMATION
  Report Type: 
  Country: None (occurrence: None)
  Receive Date: 20110907
  Receipt Date: 20110830
  Transmission Date: 20111222
  Serious: Yes (Other)
  Sender: FDA-Public Use
  Company Number: 1000023082

PATIENT
  Age: 53 Year
  Sex: Male

DRUGS (3)
  1. LEVOTHROID [Suspect]
     Indication: AUTOIMMUNE THYROIDITIS
     Dosage: 100 MCG (100 MCG, 1 IN 1 D)
  2. LEVOTHROID [Suspect]
     Indication: AUTOIMMUNE THYROIDITIS
     Dosage: 300 MCG (300 MCG, 1 IN 1 D)
  3. LEVOTHROID [Suspect]
     Indication: AUTOIMMUNE THYROIDITIS
     Dosage: LOW DOSE (NOS)

REACTIONS (2)
  - HYPERTHYROIDISM [None]
  - MYOCARDIAL ISCHAEMIA [None]
